FAERS Safety Report 5638359-X (Version None)
Quarter: 2008Q1

REPORT INFORMATION
  Report Type: 
  Country: None (occurrence: None)
  Receive Date: 20080226
  Receipt Date: 20080222
  Transmission Date: 20080703
  Serious: Yes (Life-Threatening, Hospitalization)
  Sender: FDA-Public Use
  Company Number: PHRM2008FR00893

PATIENT
  Age: 20 Year

DRUGS (1)
  1. VOLTAREN [Suspect]
     Indication: PAIN
     Dosage: 100 MG, QD
     Route: 048

REACTIONS (5)
  - EMERGENCY CARE [None]
  - INJECTION SITE ABSCESS [None]
  - NECROTISING FASCIITIS STAPHYLOCOCCAL [None]
  - STAPHYLOCOCCAL INFECTION [None]
  - SURGERY [None]
